FAERS Safety Report 12858288 (Version 4)
Quarter: 2017Q1

REPORT INFORMATION
  Report Type: Report from Study
  Country: FR (occurrence: FR)
  Receive Date: 20161018
  Receipt Date: 20170120
  Transmission Date: 20170428
  Serious: Yes (Death)
  Sender: FDA-Public Use
  Company Number: FR-VIFOR (INTERNATIONAL) INC.-VIT-2016-06298

PATIENT
  Age: 52 Year
  Sex: Male

DRUGS (15)
  1. ARANESP [Concomitant]
     Active Substance: DARBEPOETIN ALFA
     Dates: start: 20160504
  2. LACTULOSE. [Concomitant]
     Active Substance: LACTULOSE
     Indication: CONSTIPATION
     Dates: start: 20150413
  3. OROCAL [Suspect]
     Active Substance: CALCIUM CARBONATE
     Indication: HYPERPHOSPHATAEMIA
     Dates: start: 20160725
  4. OROCAL [Concomitant]
     Active Substance: CALCIUM CARBONATE
     Indication: HYPERPHOSPHATAEMIA
  5. VELPHORO [Suspect]
     Active Substance: FERRIC OXYHYDROXIDE
     Indication: PRODUCT USED FOR UNKNOWN INDICATION
     Dates: start: 20160725
  6. ARANESP [Concomitant]
     Active Substance: DARBEPOETIN ALFA
     Indication: ANAEMIA
     Dates: start: 20151223, end: 20160225
  7. VELPHORO [Suspect]
     Active Substance: FERRIC OXYHYDROXIDE
     Dates: start: 20160801
  8. FOSRENOL [Suspect]
     Active Substance: LANTHANUM CARBONATE
     Indication: HYPERPHOSPHATAEMIA
     Dates: start: 20151024
  9. PHOSPHOSORB [Suspect]
     Active Substance: CALCIUM ACETATE
     Indication: HYPERPHOSPHATAEMIA
     Dosage: 4 CP
     Dates: start: 20150930
  10. OROCAL [Concomitant]
     Active Substance: CALCIUM CARBONATE
     Indication: HYPOCALCAEMIA
     Dates: start: 20150729, end: 20160724
  11. OGASTORO [Concomitant]
     Active Substance: LANSOPRAZOLE
     Indication: GASTROOESOPHAGEAL REFLUX DISEASE
     Dates: start: 20150427
  12. ARANESP [Concomitant]
     Active Substance: DARBEPOETIN ALFA
     Dates: start: 20160226, end: 20160503
  13. VELPHORO [Suspect]
     Active Substance: FERRIC OXYHYDROXIDE
     Dates: start: 20160808
  14. VENOFER [Concomitant]
     Active Substance: IRON SUCROSE
     Indication: IRON DEFICIENCY
     Route: 042
     Dates: start: 20160129
  15. ZYMAD [Concomitant]
     Active Substance: CHOLECALCIFEROL
     Indication: VITAMIN D DEFICIENCY
     Dates: start: 20140619

REACTIONS (3)
  - Granuloma [Fatal]
  - Lung transplant [Fatal]
  - Haemoptysis [Fatal]

NARRATIVE: CASE EVENT DATE: 2016
